FAERS Safety Report 6030191-0 (Version None)
Quarter: 2009Q1

REPORT INFORMATION
  Report Type: 
  Country: None (occurrence: None)
  Receive Date: 20090107
  Receipt Date: 20080904
  Transmission Date: 20090719
  Serious: No
  Sender: FDA-Public Use
  Company Number: US-BAYER-200812728BCC

PATIENT
  Age: 46 Year
  Sex: Female
  Weight: 118 kg

DRUGS (4)
  1. ALEVE [Suspect]
     Indication: ARTHRITIS
     Dosage: UNIT DOSE: 220 MG
     Route: 048
     Dates: start: 20080611
  2. PROZAC [Concomitant]
     Route: 065
  3. SYNTHROID [Concomitant]
     Route: 065
  4. ADDERALL 10 [Concomitant]
     Route: 065

REACTIONS (3)
  - COLD SWEAT [None]
  - DIZZINESS [None]
  - PALPITATIONS [None]
